FAERS Safety Report 4896916-2 (Version None)
Quarter: 2006Q1

REPORT INFORMATION
  Report Type: 
  Country: None (occurrence: None)
  Receive Date: 20060131
  Receipt Date: 20060120
  Transmission Date: 20060701
  Serious: Yes (Other)
  Sender: FDA-Public Use
  Company Number: PHNU2006DE00643

PATIENT
  Sex: Female

DRUGS (4)
  1. ARTEOPTIC 1% (NVO) [Suspect]
     Indication: GLAUCOMA
     Dosage: UNKNOWN
     Dates: start: 19900101
  2. FLOXAL EYEDROPS [Concomitant]
     Indication: BACTERIAL INFECTION
     Dates: start: 20051201, end: 20051201
  3. ACTIHAEMYL [Concomitant]
     Indication: EYE PAIN
  4. CORTISONE ACETATE TAB [Concomitant]
     Indication: CORNEAL DISORDER

REACTIONS (5)
  - BACTERIAL INFECTION [None]
  - CATARACT OPERATION [None]
  - CORNEAL DISORDER [None]
  - DRUG TOLERANCE DECREASED [None]
  - EYE PAIN [None]
